FAERS Safety Report 9242565 (Version 1)
Quarter: 2013Q2

REPORT INFORMATION
  Report Type: Report from Study
  Country: BR (occurrence: BR)
  Receive Date: 20130419
  Receipt Date: 20130419
  Transmission Date: 20140414
  Serious: Yes (Other)
  Sender: FDA-Public Use
  Company Number: BR-ABBOTT-13P-020-1077395-00

PATIENT
  Sex: Female
  Weight: 60 kg

DRUGS (6)
  1. HUMIRA [Suspect]
     Indication: RHEUMATOID ARTHRITIS
     Route: 058
     Dates: start: 2009, end: 201207
  2. METHOTREXATE [Concomitant]
     Indication: ARTHRITIS
     Route: 048
     Dates: start: 2012
  3. PREDSIM [Concomitant]
     Indication: ARTHRITIS
     Route: 048
     Dates: start: 2008
  4. ENDOFOLIN [Concomitant]
     Indication: ARTHRITIS
     Route: 048
     Dates: start: 2011
  5. ACTEMRA [Concomitant]
     Indication: ARTHRITIS
     Route: 042
     Dates: start: 201206
  6. SIMVASTATIN [Concomitant]
     Indication: BLOOD CHOLESTEROL
     Route: 048
     Dates: start: 201210

REACTIONS (5)
  - Drug-induced liver injury [Recovered/Resolved]
  - Nephrolithiasis [Recovered/Resolved]
  - Renal disorder [Recovered/Resolved]
  - Headache [Recovered/Resolved]
  - Dysphonia [Recovered/Resolved]
